FAERS Safety Report 16059216 (Version 1)
Quarter: 2019Q1

REPORT INFORMATION
  Report Type: Spontaneous
  Country: US (occurrence: US)
  Receive Date: 20190311
  Receipt Date: 20190311
  Transmission Date: 20190418
  Serious: Yes (Other)
  Sender: FDA-Public Use
  Company Number: US-PFIZER INC-2019098637

PATIENT
  Sex: Female

DRUGS (1)
  1. GENOTROPIN MQ [Suspect]
     Active Substance: SOMATROPIN
     Dosage: 0.4 MG, 5 DAYS A WEEK
     Route: 050
     Dates: start: 20090624

REACTIONS (2)
  - Abortion spontaneous [Unknown]
  - Exposure via partner [Unknown]
